FAERS Safety Report 6884027-6 (Version None)
Quarter: 2010Q3

REPORT INFORMATION
  Report Type: 
  Country: None (occurrence: None)
  Receive Date: 20100729
  Receipt Date: 20100716
  Transmission Date: 20110219
  Serious: Yes (Other)
  Sender: FDA-Public Use
  Company Number: PHHY2010JP44813

PATIENT
  Age: 59 Year
  Sex: Female

DRUGS (1)
  1. CYCLOSPORINE [Suspect]
     Indication: MYASTHENIA GRAVIS
     Dosage: 200 MG, DAILY
     Route: 048

REACTIONS (4)
  - DERMATOMYOSITIS [None]
  - HERPES ZOSTER [None]
  - MUSCLE ATROPHY [None]
  - MYASTHENIA GRAVIS [None]
